FAERS Safety Report 10625485 (Version 1)
Quarter: 2014Q4

REPORT INFORMATION
  Report Type: Spontaneous
  Country: ES (occurrence: None)
  Receive Date: 20141201
  Receipt Date: 20141201
  Transmission Date: 20150529
  Serious: Yes (Hospitalization)
  Sender: FDA-Public Use
  Company Number: 2643593

PATIENT
  Age: 66 Year
  Sex: Male

DRUGS (4)
  1. OXALIPLATIN. [Suspect]
     Active Substance: OXALIPLATIN
     Indication: GASTROINTESTINAL CARCINOMA
     Dosage: 28 MG MILLIGRAM(S), 1 WEEK
     Route: 042
     Dates: start: 20131104, end: 20131104
  2. RALTITREXED DISODIUM [Suspect]
     Active Substance: RALTITREXED
     Indication: GASTROINTESTINAL CARCINOMA
     Dosage: 1 DAY
     Route: 042
     Dates: start: 20131104, end: 20131104
  3. DEXAMETHASONE. [Concomitant]
     Active Substance: DEXAMETHASONE
  4. METOCLOPRAMIDE. [Concomitant]
     Active Substance: METOCLOPRAMIDE

REACTIONS (4)
  - Hepatitis [None]
  - Cholelithiasis [None]
  - Metastases to liver [None]
  - Hepatotoxicity [None]

NARRATIVE: CASE EVENT DATE: 20131111
